FAERS Safety Report 8051310-0 (Version None)
Quarter: 2012Q1

REPORT INFORMATION
  Report Type: 
  Country: None (occurrence: None)
  Receive Date: 20120117
  Receipt Date: 20120112
  Transmission Date: 20120608
  Serious: Yes (Life-Threatening, Other)
  Sender: FDA-Public Use
  Company Number: US-ASTRAZENECA-2011SE75398

PATIENT
  Age: 46 Year
  Sex: Male
  Weight: 99.8 kg

DRUGS (6)
  1. AMBIEN [Concomitant]
     Indication: INSOMNIA
     Route: 048
     Dates: start: 19970113
  2. SEROQUEL [Suspect]
     Route: 048
     Dates: start: 20110513
  3. TRAZODONE HCL [Concomitant]
     Indication: INSOMNIA
     Route: 048
     Dates: start: 20110313
  4. CYMBALTA [Concomitant]
     Indication: BIPOLAR DISORDER
     Route: 048
     Dates: start: 20020113
  5. SEROQUEL [Suspect]
     Indication: BIPOLAR DISORDER
     Route: 048
  6. CLONAZEPAM [Concomitant]
     Indication: ANXIETY
     Route: 048
     Dates: start: 19970113

REACTIONS (4)
  - DRUG DOSE OMISSION [None]
  - SUICIDE ATTEMPT [None]
  - SUICIDAL IDEATION [None]
  - IRRITABILITY [None]
